FAERS Safety Report 6601954-5 (Version None)
Quarter: 2010Q1

REPORT INFORMATION
  Report Type: 
  Country: None (occurrence: None)
  Receive Date: 20100225
  Receipt Date: 20100217
  Transmission Date: 20100710
  Serious: Yes (Hospitalization, Disabling, Other)
  Sender: FDA-Public Use
  Company Number: US-MERCK-0901USA03854

PATIENT
  Age: 49 Year
  Sex: Female

DRUGS (9)
  1. FOSAMAX [Suspect]
     Indication: OSTEOPOROSIS
     Route: 048
     Dates: start: 20041101, end: 20070201
  2. FOSAMAX PLUS D [Suspect]
     Indication: OSTEOPOROSIS
     Route: 048
     Dates: start: 20050901, end: 20070401
  3. DEPAKOTE [Concomitant]
     Indication: MIGRAINE PROPHYLAXIS
     Route: 065
     Dates: start: 20010101
  4. FOLIC ACID [Concomitant]
     Indication: VITAMIN SUPPLEMENTATION
     Route: 065
     Dates: start: 19960101
  5. SUMATRIPTAN SUCCINATE (IMITREX) [Concomitant]
     Indication: MIGRAINE
     Route: 065
     Dates: start: 19990101
  6. NEURONTIN [Concomitant]
     Indication: INSOMNIA
     Route: 065
     Dates: start: 20020101
  7. AREDIA [Suspect]
     Indication: OSTEOPOROSIS
     Route: 065
     Dates: start: 20050101
  8. METHADONE HYDROCHLORIDE [Concomitant]
     Indication: PAIN
     Route: 065
     Dates: start: 20000101
  9. ZOMETA [Suspect]
     Route: 065

REACTIONS (42)
  - ANAEMIA [None]
  - BLISTER [None]
  - BRONCHITIS [None]
  - CELLULITIS [None]
  - CERVICAL DYSPLASIA [None]
  - CHRONIC OBSTRUCTIVE PULMONARY DISEASE [None]
  - COLITIS ULCERATIVE [None]
  - COLLAPSE OF LUNG [None]
  - COSTOCHONDRITIS [None]
  - DENTAL CARIES [None]
  - DEPRESSION [None]
  - DIARRHOEA [None]
  - DRUG HYPERSENSITIVITY [None]
  - DRUG INEFFECTIVE [None]
  - DYSPEPSIA [None]
  - EMOTIONAL DISTRESS [None]
  - FATIGUE [None]
  - FOOT FRACTURE [None]
  - GALLBLADDER DISORDER [None]
  - GASTRIC DISORDER [None]
  - GASTRIC ULCER [None]
  - GINGIVITIS [None]
  - HAEMATURIA [None]
  - HEADACHE [None]
  - HORMONE LEVEL ABNORMAL [None]
  - HYPOAESTHESIA [None]
  - IRRITABLE BOWEL SYNDROME [None]
  - JAW FRACTURE [None]
  - MALABSORPTION [None]
  - NEOPLASM [None]
  - OCCULT BLOOD POSITIVE [None]
  - OEDEMA PERIPHERAL [None]
  - OSTEONECROSIS [None]
  - OSTEOSCLEROSIS [None]
  - PAIN [None]
  - RESPIRATORY TRACT CONGESTION [None]
  - RIB FRACTURE [None]
  - ROAD TRAFFIC ACCIDENT [None]
  - SLEEP APNOEA SYNDROME [None]
  - THORACIC VERTEBRAL FRACTURE [None]
  - TOOTH DISORDER [None]
  - URINARY TRACT INFECTION [None]
